FAERS Safety Report 21098371 (Version 2)
Quarter: 2022Q3

REPORT INFORMATION
  Report Type: Spontaneous
  Country: US (occurrence: US)
  Receive Date: 20220719
  Receipt Date: 20220811
  Transmission Date: 20221027
  Serious: Yes (Other)
  Sender: FDA-Public Use
  Company Number: US-REGENERON PHARMACEUTICALS, INC.-2022-093710

PATIENT
  Sex: Female

DRUGS (41)
  1. EYLEA [Suspect]
     Active Substance: AFLIBERCEPT
     Indication: Neovascular age-related macular degeneration
     Dosage: 1 MG, EVERY 4 TO 8 WEEKS INTO RIGHT EYE, 1ST DOSE; EYLEA PFS GERRESHEIMER
     Route: 031
     Dates: start: 20200316, end: 20200316
  2. EYLEA [Suspect]
     Active Substance: AFLIBERCEPT
     Indication: Choroidal neovascularisation
     Dosage: 1 MG, EVERY 4 TO 8 WEEKS INTO RIGHT EYE, 2ND DOSE;  EYLEA PFS GERRESHEIMER
     Route: 031
     Dates: start: 20200511, end: 20200511
  3. EYLEA [Suspect]
     Active Substance: AFLIBERCEPT
     Dosage: 1 MG, EVERY 4 TO 8 WEEKS INTO RIGHT EYE, 3RD DOSE;  EYLEA PFS GERRESHEIMER
     Route: 031
     Dates: start: 20200701, end: 20200701
  4. EYLEA [Suspect]
     Active Substance: AFLIBERCEPT
     Dosage: 1 MG, EVERY 4 TO 8 WEEKS INTO RIGHT EYE, 4TH DOSE;  EYLEA PFS GERRESHEIMER
     Route: 031
     Dates: start: 20200825, end: 20200825
  5. EYLEA [Suspect]
     Active Substance: AFLIBERCEPT
     Dosage: 1 MG, EVERY 4 TO 8 WEEKS INTO RIGHT EYE, 5TH DOSE;  EYLEA PFS GERRESHEIMER
     Route: 031
     Dates: start: 20201013, end: 20201013
  6. EYLEA [Suspect]
     Active Substance: AFLIBERCEPT
     Dosage: 1 MG, EVERY 4 TO 8 WEEKS INTO RIGHT EYE, 6TH DOSE;  EYLEA PFS GERRESHEIMER
     Route: 031
     Dates: start: 20201208, end: 20201208
  7. EYLEA [Suspect]
     Active Substance: AFLIBERCEPT
     Dosage: 1 MG, EVERY 4 TO 8 WEEKS INTO RIGHT EYE, 7TH DOSE;  EYLEA PFS GERRESHEIMER
     Route: 031
     Dates: start: 20210202, end: 20210202
  8. EYLEA [Suspect]
     Active Substance: AFLIBERCEPT
     Dosage: 1 MG, EVERY 4 TO 8 WEEKS INTO RIGHT EYE, 8TH DOSE;  EYLEA PFS GERRESHEIMER
     Route: 031
     Dates: start: 20210316, end: 20210316
  9. EYLEA [Suspect]
     Active Substance: AFLIBERCEPT
     Dosage: 1 MG, EVERY 4 TO 8 WEEKS INTO RIGHT EYE, 9TH DOSE;  EYLEA PFS GERRESHEIMER
     Route: 031
     Dates: start: 20210521, end: 20210521
  10. EYLEA [Suspect]
     Active Substance: AFLIBERCEPT
     Dosage: 1 MG, EVERY 4 TO 8 WEEKS INTO RIGHT EYE, 10TH DOSE;  EYLEA PFS GERRESHEIMER
     Route: 031
     Dates: start: 20210707, end: 20210707
  11. EYLEA [Suspect]
     Active Substance: AFLIBERCEPT
     Dosage: 1 MG, EVERY 4 TO 8 WEEKS INTO RIGHT EYE, 11TH DOSE;  EYLEA PFS GERRESHEIMER
     Route: 031
     Dates: start: 20210915, end: 20210915
  12. EYLEA [Suspect]
     Active Substance: AFLIBERCEPT
     Dosage: 1 MG, EVERY 4 TO 8 WEEKS INTO RIGHT EYE, 12TH DOSE;  EYLEA PFS GERRESHEIMER
     Route: 031
     Dates: start: 20211029, end: 20211029
  13. EYLEA [Suspect]
     Active Substance: AFLIBERCEPT
     Dosage: 1 MG, EVERY 4 TO 8 WEEKS INTO RIGHT EYE, 13TH DOSE;  EYLEA PFS GERRESHEIMER
     Route: 031
     Dates: start: 20211208, end: 20211208
  14. EYLEA [Suspect]
     Active Substance: AFLIBERCEPT
     Dosage: 1 MG, EVERY 4 TO 8 WEEKS INTO RIGHT EYE, 14TH DOSE;  EYLEA PFS GERRESHEIMER
     Route: 031
     Dates: start: 20220124, end: 20220124
  15. EYLEA [Suspect]
     Active Substance: AFLIBERCEPT
     Dosage: 1 MG, EVERY 4 TO 8 WEEKS INTO RIGHT EYE, 15TH DOSE;  EYLEA PFS GERRESHEIMER
     Route: 031
     Dates: start: 20220301, end: 20220301
  16. EYLEA [Suspect]
     Active Substance: AFLIBERCEPT
     Dosage: 1 MG, EVERY 4 TO 8 WEEKS INTO RIGHT EYE, 16TH DOSE;  EYLEA PFS GERRESHEIMER
     Route: 031
     Dates: start: 20220412, end: 20220412
  17. EYLEA [Suspect]
     Active Substance: AFLIBERCEPT
     Dosage: 1 MG, EVERY 4 TO 8 WEEKS INTO RIGHT EYE, 17TH DOSE;  EYLEA PFS GERRESHEIMER
     Route: 031
     Dates: start: 20220525, end: 20220525
  18. ASPIRIN [Concomitant]
     Active Substance: ASPIRIN
     Indication: Product used for unknown indication
     Dosage: 1 {DF}, QD (EXTENDED RELEASE TABLET)
     Route: 048
  19. VITAMINS NOS [Concomitant]
     Active Substance: VITAMINS
     Indication: Product used for unknown indication
  20. SIMVASTATIN [Concomitant]
     Active Substance: SIMVASTATIN
     Indication: Product used for unknown indication
     Dosage: UNK, QOD
  21. LUCENTIS [Concomitant]
     Active Substance: RANIBIZUMAB
     Indication: Neovascular age-related macular degeneration
     Dosage: UNK, RIGHT EYE, FIRST DOSE, INJECTION
     Route: 031
     Dates: start: 20140128, end: 20140128
  22. LUCENTIS [Concomitant]
     Active Substance: RANIBIZUMAB
     Indication: Choroidal neovascularisation
     Dosage: UNK, BOTH EYES, 2ND DOSE, INJECTION
     Route: 031
     Dates: start: 20160119, end: 20160119
  23. LUCENTIS [Concomitant]
     Active Substance: RANIBIZUMAB
     Dosage: UNK, BOTH EYES, 3RD DOSE, INJECTION
     Route: 031
     Dates: start: 20160308, end: 20160308
  24. LUCENTIS [Concomitant]
     Active Substance: RANIBIZUMAB
     Dosage: UNK, BOTH EYES, 4TH DOSE, INJECTION
     Route: 031
     Dates: start: 20160419, end: 20160419
  25. LUCENTIS [Concomitant]
     Active Substance: RANIBIZUMAB
     Dosage: UNK, BOTH EYES, 5TH DOSE, INJECTION
     Route: 031
     Dates: start: 20160601, end: 20160601
  26. LUCENTIS [Concomitant]
     Active Substance: RANIBIZUMAB
     Dosage: UNK, BOTH EYES, 6TH DOSE, INJECTION
     Route: 031
     Dates: start: 20160729, end: 20160729
  27. LUCENTIS [Concomitant]
     Active Substance: RANIBIZUMAB
     Dosage: UNK, BOTH EYES, 7TH DOSE, INJECTION
     Route: 031
     Dates: start: 20160928, end: 20160928
  28. LUCENTIS [Concomitant]
     Active Substance: RANIBIZUMAB
     Dosage: UNK, BOTH EYES, 8TH DOSE, INJECTION
     Route: 031
     Dates: start: 20161114, end: 20161114
  29. LUCENTIS [Concomitant]
     Active Substance: RANIBIZUMAB
     Dosage: UNK, BOTH EYES, 9TH DOSE, INJECTION
     Route: 031
     Dates: start: 20160117, end: 20160117
  30. LUCENTIS [Concomitant]
     Active Substance: RANIBIZUMAB
     Dosage: 1 MG (5 UNITS), BOTH EYES, 10TH DOSE, PFS
     Route: 031
     Dates: start: 20170313, end: 20170313
  31. LUCENTIS [Concomitant]
     Active Substance: RANIBIZUMAB
     Dosage: UNK, LEFT EYE, 11TH DOSE, INJECTION
     Route: 031
     Dates: start: 20170418, end: 20170418
  32. LUCENTIS [Concomitant]
     Active Substance: RANIBIZUMAB
     Dosage: 1 MG (5 UNITS), LEFT EYE, 12TH DOSE, PFS
     Route: 031
     Dates: start: 20170531, end: 20170531
  33. LUCENTIS [Concomitant]
     Active Substance: RANIBIZUMAB
     Dosage: 1 MG (5 UNITS),  LEFT EYE, 13TH DOSE, PFS
     Route: 031
     Dates: start: 20170714, end: 20170714
  34. LUCENTIS [Concomitant]
     Active Substance: RANIBIZUMAB
     Dosage: 1 MG (5 UNITS),  LEFT EYE, 14TH DOSE, PFS
     Route: 031
     Dates: start: 20170815, end: 20170815
  35. LUCENTIS [Concomitant]
     Active Substance: RANIBIZUMAB
     Dosage: 1 MG (5 UNITS),  LEFT EYE, 15TH DOSE, PFS
     Route: 031
     Dates: start: 20170915, end: 20170915
  36. LUCENTIS [Concomitant]
     Active Substance: RANIBIZUMAB
     Dosage: 1 MG (5 UNITS), LEFT EYE, 16TH DOSE, PFS
     Route: 031
     Dates: start: 20171027, end: 20171027
  37. LUCENTIS [Concomitant]
     Active Substance: RANIBIZUMAB
     Dosage: 1 MG (5 UNITS),  LEFT EYE, 17TH DOSE, PFS
     Route: 031
     Dates: start: 20171201, end: 20171201
  38. LUCENTIS [Concomitant]
     Active Substance: RANIBIZUMAB
     Dosage: 1 MG (5 UNITS),  LEFT EYE, 18TH DOSE, PFS
     Route: 031
     Dates: start: 20180120, end: 20180120
  39. LUCENTIS [Concomitant]
     Active Substance: RANIBIZUMAB
     Dosage: 1 MG (5 UNITS), LEFT EYE, 19TH DOSE, PFS
     Route: 031
     Dates: start: 20180306, end: 20180306
  40. LUCENTIS [Concomitant]
     Active Substance: RANIBIZUMAB
     Dosage: 1 MG (5 UNITS), RIGHT EYE, 20TH DOSE, PFS
     Route: 031
     Dates: start: 20220711, end: 20220711
  41. PROBIOTICS NOS [Concomitant]
     Active Substance: PROBIOTICS NOS
     Indication: Product used for unknown indication

REACTIONS (5)
  - Angina pectoris [Recovered/Resolved]
  - Dizziness [Recovered/Resolved]
  - Bundle branch block [Not Recovered/Not Resolved]
  - Coronary artery disease [Not Recovered/Not Resolved]
  - Vision blurred [Not Recovered/Not Resolved]

NARRATIVE: CASE EVENT DATE: 20220504
